FAERS Safety Report 8419065-5 (Version None)
Quarter: 2012Q2

REPORT INFORMATION
  Report Type: 
  Country: None (occurrence: None)
  Receive Date: 20120607
  Receipt Date: 20120605
  Transmission Date: 20120825
  Serious: Yes (Other)
  Sender: FDA-Public Use
  Company Number: PHEH2012US011412

PATIENT

DRUGS (4)
  1. LOPRESSOR [Suspect]
     Dosage: 0.5 DF, (50 MG) HALF TABLET
  2. METOPROLOL TARTRATE [Suspect]
     Dosage: 50 MG
  3. ALLEGRA [Concomitant]
  4. SINGULAIR [Concomitant]

REACTIONS (3)
  - HYPERSENSITIVITY [None]
  - ASTHMA [None]
  - WRONG TECHNIQUE IN DRUG USAGE PROCESS [None]
